FAERS Safety Report 6026837-3 (Version None)
Quarter: 2009Q1

REPORT INFORMATION
  Report Type: 
  Country: None (occurrence: None)
  Receive Date: 20090105
  Receipt Date: 20081224
  Transmission Date: 20090719
  Serious: Yes (Hospitalization)
  Sender: FDA-Public Use
  Company Number: JP-NOVOPROD-282691

PATIENT
  Age: 70 Year
  Sex: Male

DRUGS (1)
  1. NOVOLIN R [Suspect]
     Indication: LATENT AUTOIMMUNE DIABETES IN ADULTS
     Route: 058

REACTIONS (2)
  - DIABETIC KETOACIDOSIS [None]
  - HYPOGLYCAEMIA UNAWARENESS [None]
